FAERS Safety Report 24393195 (Version 2)
Quarter: 2024Q4

REPORT INFORMATION
  Report Type: Report from Study
  Country: GR (occurrence: GR)
  Receive Date: 20241003
  Receipt Date: 20241220
  Transmission Date: 20250114
  Serious: Yes (Hospitalization, Other)
  Sender: GLAXOSMITHKLINE
  Company Number: GR-GLAXOSMITHKLINE-GR2024EME103228

PATIENT

DRUGS (5)
  1. MEPOLIZUMAB [Suspect]
     Active Substance: MEPOLIZUMAB
     Indication: Chronic obstructive pulmonary disease
     Dosage: 1 DF, MO
     Dates: start: 202403
  2. MEPOLIZUMAB [Suspect]
     Active Substance: MEPOLIZUMAB
     Indication: Asthma
  3. BROMAZEPAM [Concomitant]
     Active Substance: BROMAZEPAM
     Indication: Pain
     Dosage: 3 MG EVERY 8-10 DAYS
  4. BROMAZEPAM [Concomitant]
     Active Substance: BROMAZEPAM
     Indication: Insomnia
  5. BISOPROLOL FUMARATE [Concomitant]
     Active Substance: BISOPROLOL FUMARATE
     Indication: Tachycardia
     Dosage: 0.5 DF, QD 2.5 MG

REACTIONS (7)
  - Haemorrhoids [Recovered/Resolved]
  - Anal fissure haemorrhage [Recovered/Resolved]
  - Urinary tract infection [Unknown]
  - Pollakiuria [Unknown]
  - Product dose omission issue [Unknown]
  - Product use in unapproved indication [Unknown]
  - Product complaint [Unknown]

NARRATIVE: CASE EVENT DATE: 20240701
